FAERS Safety Report 5201969-8 (Version None)
Quarter: 2007Q1

REPORT INFORMATION
  Report Type: 
  Country: None (occurrence: None)
  Receive Date: 20070104
  Receipt Date: 20070104
  Transmission Date: 20070707
  Serious: Yes (Other)
  Sender: FDA-Public Use
  Company Number: None

PATIENT
  Age: 50 Year
  Sex: Male
  Weight: 158.759 kg

DRUGS (2)
  1. HEPARIN [Suspect]
     Indication: INTRAVENOUS CATHETER MANAGEMENT
     Dosage: 5ML  -500 UNITS-   EVERY 12 HOURS  IV
     Route: 042
     Dates: start: 20061228, end: 20061228
  2. SODIUM CHLORIDE 0.9% [Suspect]
     Indication: INTRAVENOUS CATHETER MANAGEMENT
     Dosage: 5ML   EVERY 12 HOURS  IV
     Route: 042

REACTIONS (2)
  - DYSGEUSIA [None]
  - NASAL DISCOMFORT [None]
